FAERS Safety Report 26080578 (Version 1)
Quarter: 2025Q4

REPORT INFORMATION
  Report Type: Spontaneous
  Country: CN (occurrence: None)
  Receive Date: 20251124
  Receipt Date: 20251124
  Transmission Date: 20260118
  Serious: Yes (Hospitalization)
  Sender: JIANGSU HANSOH PHARMACEUTICAL GROUP CO., LTD.
  Company Number: CN-Hansoh-20252190021564

PATIENT
  Sex: Male

DRUGS (15)
  1. PEMETREXED DISODIUM [Suspect]
     Active Substance: PEMETREXED DISODIUM
     Indication: Lung adenocarcinoma stage IV
     Dosage: 775 MG, Q3W
     Route: 041
     Dates: start: 20250219, end: 20250219
  2. PEMETREXED DISODIUM [Suspect]
     Active Substance: PEMETREXED DISODIUM
     Dosage: 775 MG, Q3W
     Route: 041
     Dates: start: 20250312, end: 20250312
  3. PEMETREXED DISODIUM [Suspect]
     Active Substance: PEMETREXED DISODIUM
     Dosage: 775 MG, Q3W
     Route: 041
     Dates: start: 20250402, end: 20250402
  4. PEMETREXED DISODIUM [Suspect]
     Active Substance: PEMETREXED DISODIUM
     Dosage: 582.5 MG, Q3W
     Route: 041
     Dates: start: 20250515, end: 20250515
  5. PEMETREXED DISODIUM [Suspect]
     Active Substance: PEMETREXED DISODIUM
     Dosage: 582.5 MG, Q3W
     Route: 041
     Dates: start: 20250606, end: 20250606
  6. PEMETREXED DISODIUM [Suspect]
     Active Substance: PEMETREXED DISODIUM
     Dosage: 582.5 MG, Q3W
     Route: 041
     Dates: start: 20250625, end: 20250625
  7. PEMETREXED DISODIUM [Suspect]
     Active Substance: PEMETREXED DISODIUM
     Dosage: 387.5 MG, Q3W
     Route: 041
     Dates: start: 20250718
  8. CARBOPLATIN [Suspect]
     Active Substance: CARBOPLATIN
     Indication: Lung adenocarcinoma stage IV
     Dosage: TEST RESULT:43TEST UNIT:ABSENTTEST ASSESSMENT:DONEHTEST RESULT:6MG EVERY 3 WEEKS
     Route: 041
     Dates: start: 20250219, end: 20250219
  9. CARBOPLATIN [Suspect]
     Active Substance: CARBOPLATIN
     Dosage: 571 MG, EVERY 3 WEEKS
     Route: 041
     Dates: start: 20250312, end: 20250312
  10. CARBOPLATIN [Suspect]
     Active Substance: CARBOPLATIN
     Dosage: 493 MG, EVERY 3 WEEKS
     Route: 041
     Dates: start: 20250402, end: 20250402
  11. CARBOPLATIN [Suspect]
     Active Substance: CARBOPLATIN
     Dosage: 420 MG, Q3W
     Route: 041
     Dates: start: 20250515, end: 20250515
  12. PEMBROLIZUMAB [Suspect]
     Active Substance: PEMBROLIZUMAB
     Indication: Lung adenocarcinoma stage IV
     Dosage: 400 MG, Q6ZHOU
     Route: 041
     Dates: start: 20250219, end: 20250219
  13. PEMBROLIZUMAB [Suspect]
     Active Substance: PEMBROLIZUMAB
     Dosage: 400 MG, Q6ZHOU
     Route: 041
     Dates: start: 20250402, end: 20250402
  14. PEMBROLIZUMAB [Suspect]
     Active Substance: PEMBROLIZUMAB
     Dosage: 400 MG, Q6ZHOU
     Route: 041
     Dates: start: 20250515, end: 20250515
  15. PEMBROLIZUMAB [Suspect]
     Active Substance: PEMBROLIZUMAB
     Dosage: 400 MG, Q6ZHOU
     Route: 041
     Dates: start: 20250625, end: 20250625

REACTIONS (4)
  - Bacteraemia [Recovered/Resolved]
  - Myelosuppression [Recovering/Resolving]
  - Deep vein thrombosis [Recovering/Resolving]
  - Urinary tract infection [Unknown]

NARRATIVE: CASE EVENT DATE: 20250401
